FAERS Safety Report 8860736 (Version 3)
Quarter: 2013Q2

REPORT INFORMATION
  Report Type: Spontaneous
  Country: BR (occurrence: BR)
  Receive Date: 20121025
  Receipt Date: 20130506
  Transmission Date: 20140414
  Serious: Yes (Life-Threatening, Other)
  Sender: FDA-Public Use
  Company Number: CHPA2012BR022404

PATIENT
  Age: 74 Year
  Sex: Female
  Weight: 50 kg

DRUGS (4)
  1. BENEFIBER W/ WHEAT DEXTRIN [Suspect]
     Indication: CONSTIPATION
     Dosage: 2 TSP, QD
     Route: 048
     Dates: start: 201210
  2. BENEFIBER W/ WHEAT DEXTRIN [Suspect]
     Dosage: 2 TSP, QD
     Route: 048
     Dates: start: 201210
  3. MESACOL [Concomitant]
     Indication: GASTROINTESTINAL INFLAMMATION
     Dosage: 1 DF, QD
     Route: 048
     Dates: start: 201209
  4. DUSPATALIN//MEBEVERINE HYDROCHLORIDE [Concomitant]
     Indication: GASTROINTESTINAL HYPOMOTILITY
     Dosage: 2 DF, QD
     Route: 048

REACTIONS (13)
  - Feeling abnormal [Not Recovered/Not Resolved]
  - Constipation [Not Recovered/Not Resolved]
  - Dizziness [Not Recovered/Not Resolved]
  - Malaise [Not Recovered/Not Resolved]
  - Paraesthesia [Not Recovered/Not Resolved]
  - Back pain [Not Recovered/Not Resolved]
  - Arthralgia [Not Recovered/Not Resolved]
  - Abnormal faeces [Not Recovered/Not Resolved]
  - Haemorrhoids [Recovering/Resolving]
  - Hearing impaired [Not Recovered/Not Resolved]
  - Hearing disability [Unknown]
  - Therapeutic response unexpected [Unknown]
  - Off label use [Unknown]
